FAERS Safety Report 4640764-5 (Version None)
Quarter: 2005Q2

REPORT INFORMATION
  Report Type: 
  Country: None (occurrence: None)
  Receive Date: 20050324
  Receipt Date: 20050104
  Transmission Date: 20051028
  Serious: No
  Sender: FDA-Public Use
  Company Number: 211488

PATIENT
  Age: 56 Year
  Sex: Female
  Weight: 84.4 kg

DRUGS (4)
  1. AVASTIN [Suspect]
     Indication: COLORECTAL CANCER METASTATIC
     Dosage: 420 MG, Q2W, INTRAVENOUS
     Route: 042
     Dates: start: 20040907
  2. FLUOROURACIL [Concomitant]
  3. OXALIPLATIN (OXALIPLATIN_ [Concomitant]
  4. LEUCOVORIN CALCIUM [Concomitant]

REACTIONS (1)
  - HYPERTENSION [None]
